FAERS Safety Report 4967265-9 (Version None)
Quarter: 2006Q2

REPORT INFORMATION
  Report Type: 
  Country: None (occurrence: None)
  Receive Date: 20060403
  Receipt Date: 20060324
  Transmission Date: 20061013
  Serious: Yes (Life-Threatening, Hospitalization, Other)
  Sender: FDA-Public Use
  Company Number: 2006010533

PATIENT
  Age: 41 Year
  Sex: Male
  Weight: 72.5755 kg

DRUGS (4)
  1. NEURONTIN [Suspect]
     Indication: MIGRAINE
     Dates: start: 20000101, end: 20030101
  2. ASPIRIN [Suspect]
     Indication: ILL-DEFINED DISORDER
  3. INDERAL [Concomitant]
  4. VITAMINS (VITAMINS) [Concomitant]

REACTIONS (7)
  - FEELING ABNORMAL [None]
  - IMPAIRED WORK ABILITY [None]
  - PAIN [None]
  - SELF ESTEEM DECREASED [None]
  - STRESS [None]
  - SUICIDE ATTEMPT [None]
  - THINKING ABNORMAL [None]
